FAERS Safety Report 8916857 (Version 1)
Quarter: 2012Q4

REPORT INFORMATION
  Report Type: 
  Country: US (occurrence: US)
  Receive Date: 20121120
  Receipt Date: 20121120
  Transmission Date: 20130627
  Serious: No
  Sender: FDA-Public Use
  Company Number: US-PFIZER INC-2012287911

PATIENT
  Age: 72 Year
  Sex: Male
  Weight: 99.77 kg

DRUGS (5)
  1. LYRICA [Suspect]
     Indication: KNEE PAIN
     Dosage: 50 mg, 3x/day
     Route: 048
     Dates: start: 201209
  2. GLYBURIDE [Concomitant]
     Indication: DIABETES
     Dosage: 5 mg, UNK
  3. METFORMIN [Concomitant]
     Indication: DIABETES
     Dosage: 500 mg, UNK
  4. LISINOPRIL [Concomitant]
     Indication: BLOOD PRESSURE HIGH
     Dosage: UNK
  5. SIMVASTATIN [Concomitant]
     Indication: HIGH CHOLESTEROL
     Dosage: 40 mg, UNK

REACTIONS (5)
  - Nervousness [Not Recovered/Not Resolved]
  - Tremor [Not Recovered/Not Resolved]
  - Headache [Not Recovered/Not Resolved]
  - Chills [Not Recovered/Not Resolved]
  - Sleep disorder [Not Recovered/Not Resolved]
